FAERS Safety Report 5912966-9 (Version None)
Quarter: 2008Q4

REPORT INFORMATION
  Report Type: 
  Country: None (occurrence: None)
  Receive Date: 20081008
  Receipt Date: 20080926
  Transmission Date: 20090506
  Serious: Yes (Hospitalization, Disabling, Other)
  Sender: FDA-Public Use
  Company Number: US-PFIZER INC-2006104138

PATIENT
  Sex: Male
  Weight: 6.8 kg

DRUGS (7)
  1. DILANTIN INJECTION [Suspect]
     Indication: CONVULSION
     Route: 042
     Dates: start: 19921013, end: 19921103
  2. DILANTIN INJECTION [Suspect]
     Route: 048
     Dates: start: 19921019
  3. PHENOBARBITAL [Suspect]
     Indication: CONVULSION
     Dosage: DAILY DOSE:75MG
     Route: 048
     Dates: start: 19921013, end: 19921103
  4. PYRIDOXINE HYDROCHLORIDE [Concomitant]
     Indication: CONVULSION
     Route: 048
     Dates: start: 19921015
  5. AMOXICILLIN [Concomitant]
     Indication: OTITIS MEDIA
     Route: 048
     Dates: start: 19921018
  6. ATIVAN [Concomitant]
     Indication: CONVULSION
     Route: 048
     Dates: start: 19921103, end: 19921106
  7. DEPAKOTE [Concomitant]
     Indication: CONVULSION

REACTIONS (14)
  - ASTHMA [None]
  - ATTENTION DEFICIT/HYPERACTIVITY DISORDER [None]
  - BONE DISORDER [None]
  - CONVULSION [None]
  - DEPRESSED LEVEL OF CONSCIOUSNESS [None]
  - FALL [None]
  - MENTAL RETARDATION [None]
  - OBESITY [None]
  - OTITIS MEDIA [None]
  - PYREXIA [None]
  - RIGHT VENTRICULAR HYPERTROPHY [None]
  - SPEECH DISORDER [None]
  - STEVENS-JOHNSON SYNDROME [None]
  - UPPER RESPIRATORY TRACT CONGESTION [None]
